FAERS Safety Report 21527027 (Version 1)
Quarter: 2022Q4

REPORT INFORMATION
  Report Type: Spontaneous
  Country: US (occurrence: US)
  Receive Date: 20221031
  Receipt Date: 20221031
  Transmission Date: 20230113
  Serious: Yes (Death, Other)
  Sender: FDA-Public Use
  Company Number: US-CIPLA LTD.-2022US06398

PATIENT

DRUGS (1)
  1. WARFARIN [Suspect]
     Active Substance: WARFARIN
     Indication: Embolism venous
     Dosage: UNK
     Route: 065
     Dates: start: 2019

REACTIONS (6)
  - Intestinal ischaemia [Fatal]
  - Atrial fibrillation [Unknown]
  - Deep vein thrombosis [Unknown]
  - Haemodynamic instability [Unknown]
  - Haemorrhage [Unknown]
  - International normalised ratio increased [Recovered/Resolved]

NARRATIVE: CASE EVENT DATE: 20190101
